FAERS Safety Report 4283217-9 (Version None)
Quarter: 2004Q1

REPORT INFORMATION
  Report Type: 
  Country: None (occurrence: None)
  Receive Date: 20040129
  Receipt Date: 20040119
  Transmission Date: 20041129
  Serious: Yes (Other)
  Sender: FDA-Public Use
  Company Number: 2004195949DE

PATIENT
  Age: 39 Year
  Sex: Female
  Weight: 114 kg

DRUGS (1)
  1. FARMORUBICIN (EPIRUBICIN HYDROCHLORIDE) [Suspect]
     Indication: BREAST CANCER
     Dosage: 300 MG, CYCLIC, IV
     Route: 042
     Dates: start: 20031230

REACTIONS (3)
  - TOOTH DEVELOPMENT DISORDER [None]
  - TOOTH DISORDER [None]
  - WHITE BLOOD CELL COUNT ABNORMAL [None]
